FAERS Safety Report 4883253-5 (Version None)
Quarter: 2006Q1

REPORT INFORMATION
  Report Type: 
  Country: None (occurrence: None)
  Receive Date: 20060118
  Receipt Date: 20060111
  Transmission Date: 20060701
  Serious: Yes (Other)
  Sender: FDA-Public Use
  Company Number: PHNU2006DE00528

PATIENT
  Sex: Male

DRUGS (1)
  1. ELIDEL [Suspect]
     Indication: NEURODERMATITIS
     Route: 061

REACTIONS (2)
  - BLINDNESS UNILATERAL [None]
  - NEURODERMATITIS [None]
